FAERS Safety Report 5730924-4 (Version None)
Quarter: 2008Q2

REPORT INFORMATION
  Report Type: 
  Country: None (occurrence: None)
  Receive Date: 20080507
  Receipt Date: 20080429
  Transmission Date: 20081010
  Serious: Yes (Other)
  Sender: FDA-Public Use
  Company Number: BR-ASTRAZENECA-2008UW08751

PATIENT
  Age: 44 Year
  Sex: Female

DRUGS (1)
  1. SEROQUEL [Suspect]
     Indication: BIPOLAR DISORDER
     Route: 048
     Dates: start: 20070301

REACTIONS (4)
  - COUGH [None]
  - HYPERTENSION [None]
  - MYOCARDIAL ISCHAEMIA [None]
  - UTERINE POLYP [None]
